FAERS Safety Report 7570927-0 (Version None)
Quarter: 2011Q2

REPORT INFORMATION
  Report Type: 
  Country: None (occurrence: None)
  Receive Date: 20110620
  Receipt Date: 20110608
  Transmission Date: 20111010
  Serious: Yes (Other)
  Sender: FDA-Public Use
  Company Number: MC201100222

PATIENT
  Age: 77 Year
  Sex: Male
  Weight: 61.6 kg

DRUGS (2)
  1. ANGIOMAX [Suspect]
     Indication: PERCUTANEOUS CORONARY INTERVENTION
     Dosage: 0.75; 1.75  MG/KG, BOLUS, INTRAVENOUS
     Route: 042
     Dates: start: 20110511, end: 20110511
  2. ANGIOMAX [Suspect]

REACTIONS (7)
  - THROMBOSIS IN DEVICE [None]
  - COAGULATION TIME SHORTENED [None]
  - INFUSION SITE EXTRAVASATION [None]
  - PROCEDURAL COMPLICATION [None]
  - MYOCARDIAL INFARCTION [None]
  - CARDIAC ARREST [None]
  - MEDICATION ERROR [None]
